FAERS Safety Report 8190527-1 (Version None)
Quarter: 2012Q1

REPORT INFORMATION
  Report Type: 
  Country: None (occurrence: None)
  Receive Date: 20120307
  Receipt Date: 20120228
  Transmission Date: 20120608
  Serious: Yes (Disabling)
  Sender: FDA-Public Use
  Company Number: US-INCYTE CORPORATION-2012IN000288

PATIENT
  Sex: Male

DRUGS (5)
  1. JAKAFI [Suspect]
     Indication: MYELOFIBROSIS
     Dosage: 15 MG, BID
     Route: 048
     Dates: start: 20120213, end: 20120227
  2. AMITRIPTYLINE HCL [Concomitant]
  3. ALLOPURINOL [Concomitant]
     Dosage: 325 UNK, UNK
  4. LYRICA [Concomitant]
  5. ASPIRIN [Concomitant]

REACTIONS (4)
  - NAUSEA [None]
  - DIZZINESS [None]
  - HEADACHE [None]
  - GENERAL PHYSICAL CONDITION ABNORMAL [None]
